FAERS Safety Report 20751774 (Version 3)
Quarter: 2023Q2

REPORT INFORMATION
  Report Type: Report from Study
  Country: US (occurrence: US)
  Receive Date: 20220426
  Receipt Date: 20230407
  Transmission Date: 20230721
  Serious: Yes (Life-Threatening, Hospitalization, Disabling, Other)
  Sender: FDA-Public Use
  Company Number: US-NOVARTISPH-NVSC2022US095537

PATIENT
  Age: 15 Year
  Sex: Female

DRUGS (2)
  1. ILARIS [Suspect]
     Active Substance: CANAKINUMAB
     Indication: Still^s disease
     Dosage: UNK
     Route: 058
     Dates: start: 20200301, end: 202012
  2. ILARIS [Suspect]
     Active Substance: CANAKINUMAB
     Dosage: 200 MG, EVERY 4 WEEKS
     Route: 058
     Dates: start: 202012, end: 20220301

REACTIONS (10)
  - Haemophagocytic lymphohistiocytosis [Recovering/Resolving]
  - Pyrexia [Recovering/Resolving]
  - Flushing [Recovering/Resolving]
  - Cytopenia [Recovering/Resolving]
  - Hyperferritinaemia [Recovering/Resolving]
  - Interleukin-2 receptor increased [Recovering/Resolving]
  - Encephalopathy [Recovering/Resolving]
  - Liver injury [Recovering/Resolving]
  - Infection [Recovering/Resolving]
  - Juvenile idiopathic arthritis [Recovering/Resolving]

NARRATIVE: CASE EVENT DATE: 20220322
